FAERS Safety Report 23043186 (Version 1)
Quarter: 2023Q4

REPORT INFORMATION
  Report Type: Spontaneous
  Country: GB (occurrence: GB)
  Receive Date: 20231009
  Receipt Date: 20231009
  Transmission Date: 20240109
  Serious: Yes (Other)
  Sender: FDA-Public Use
  Company Number: GB-PCCINC-2023-PPL-000429

PATIENT

DRUGS (1)
  1. ISOFLURANE [Suspect]
     Active Substance: ISOFLURANE
     Indication: Product used for unknown indication
     Dosage: UNK

REACTIONS (5)
  - Confusional state [Recovered/Resolved]
  - Delayed recovery from anaesthesia [Recovered/Resolved]
  - Dizziness [Recovered/Resolved]
  - Hepatic function abnormal [Recovered/Resolved]
  - Drug hypersensitivity [Unknown]
